FAERS Safety Report 23203970 (Version 1)
Quarter: 2023Q4

REPORT INFORMATION
  Report Type: Spontaneous
  Country: US (occurrence: US)
  Receive Date: 20231120
  Receipt Date: 20231120
  Transmission Date: 20240109
  Serious: No
  Sender: FDA-Public Use
  Company Number: US-ALKEM LABORATORIES LIMITED-US-ALKEM-2022-11394

PATIENT
  Age: 24 Year
  Sex: Female
  Weight: 63.492 kg

DRUGS (5)
  1. MINOCYCLINE [Suspect]
     Active Substance: MINOCYCLINE HYDROCHLORIDE
     Indication: Acne
     Dosage: 150 MILLIGRAM (100 MG IN THE MORNING AND 50 MG EVENING)
     Route: 048
  2. MINOCYCLINE [Suspect]
     Active Substance: MINOCYCLINE HYDROCHLORIDE
     Dosage: UNK RESTARTED
     Route: 065
  3. ESTROSTEP [Concomitant]
     Active Substance: ETHINYL ESTRADIOL\NORETHINDRONE ACETATE
     Indication: Hypersensitivity
     Dosage: UNK
     Route: 065
  4. DIFFERIN [Concomitant]
     Active Substance: ADAPALENE
     Indication: Acne
     Dosage: UNK QD (0.1 PERCENT EACH EVENING ON HER FACE)
     Route: 061
  5. TRIAZ [Suspect]
     Active Substance: BENZOYL PEROXIDE
     Indication: Acne
     Dosage: UNK QD (10% CLENSER TOPICALLY TO HER BACK 3-5 MIN DURING DAILY SHOWER)
     Route: 061

REACTIONS (1)
  - Depersonalisation/derealisation disorder [Recovered/Resolved]
